FAERS Safety Report 9760909 (Version 2)
Quarter: 2013Q4

REPORT INFORMATION
  Report Type: Report from Study
  Country: PL (occurrence: PL)
  Receive Date: 20131216
  Receipt Date: 20131219
  Transmission Date: 20140711
  Serious: Yes (Hospitalization)
  Sender: FDA-Public Use
  Company Number: PHHY2013PL143214

PATIENT
  Sex: 0

DRUGS (1)
  1. SOMATROPIN [Suspect]
     Indication: SMALL FOR DATES BABY
     Dosage: 0.9 MG, QD
     Route: 058
     Dates: start: 20080429

REACTIONS (1)
  - Pneumonia [Recovering/Resolving]
